FAERS Safety Report 5031650-X (Version None)
Quarter: 2006Q2

REPORT INFORMATION
  Report Type: 
  Country: None (occurrence: None)
  Receive Date: 20060615
  Receipt Date: 20060608
  Transmission Date: 20061013
  Serious: Yes (Hospitalization)
  Sender: FDA-Public Use
  Company Number: FRWYE096314APR03

PATIENT
  Age: 35 Year
  Sex: Male

DRUGS (6)
  1. NEORAL [Suspect]
     Indication: PROPHYLAXIS AGAINST TRANSPLANT REJECTION
     Dosage: VARYING DOSES BETWEEN 500 AND 300 MG DAILY ORAL
     Route: 048
     Dates: start: 20030309, end: 20030401
  2. THYMOGLOBULIN [Concomitant]
  3. SOLU-MEDROL [Concomitant]
  4. CORTAN [Concomitant]
  5. CORTAN [Concomitant]
  6. CELLCEPT [Concomitant]

REACTIONS (4)
  - AUTOANTIBODY POSITIVE [None]
  - RENAL FAILURE [None]
  - RENAL TUBULAR NECROSIS [None]
  - TRANSPLANT REJECTION [None]
